FAERS Safety Report 23873238 (Version 1)
Quarter: 2024Q2

REPORT INFORMATION
  Report Type: Spontaneous
  Country: US (occurrence: None)
  Receive Date: 20240517
  Receipt Date: 20240517
  Transmission Date: 20240716
  Serious: Yes (Other)
  Sender: FDA-Public Use
  Company Number: None

PATIENT
  Age: 54 Year
  Sex: Female
  Weight: 56.7 kg

DRUGS (3)
  1. TENECTEPLASE [Suspect]
     Active Substance: TENECTEPLASE
     Indication: Cerebrovascular accident
     Dosage: 14.5 MG ONCE INTRAVENOUS
     Route: 042
     Dates: start: 20240512, end: 20240512
  2. sodium chloride infusion [Concomitant]
     Dates: start: 20240511
  3. IOPAMIDOL [Concomitant]
     Active Substance: IOPAMIDOL
     Dates: start: 20240512, end: 20240512

REACTIONS (1)
  - Angioedema [None]

NARRATIVE: CASE EVENT DATE: 20240512
